FAERS Safety Report 8665282 (Version 2)
Quarter: 2012Q4

REPORT INFORMATION
  Report Type: Spontaneous
  Country: US (occurrence: None)
  Receive Date: 20120629
  Receipt Date: 20120820
  Transmission Date: 20130627
  Serious: Yes (Hospitalization)
  Sender: FDA-Public Use
  Company Number: 217942

PATIENT
  Age: 65 Year
  Sex: Male

DRUGS (11)
  1. INNOHEP [Suspect]
     Indication: PULMONARY EMBOLISM
     Dosage: 14000 UNITS DAILY,SUBCUTANEOUS ; 0.6 MG (1 IN 1 D),SUBCUTANEOUS ; (1 IN 1 D),SUBCUTANEOUS
     Route: 058
     Dates: start: 20110620
  2. INNOHEP [Suspect]
     Indication: PULMONARY EMBOLISM
     Dosage: 14000 UNITS DAILY,SUBCUTANEOUS ; 0.6 MG (1 IN 1 D),SUBCUTANEOUS ; (1 IN 1 D),SUBCUTANEOUS
     Route: 058
     Dates: start: 20110610, end: 20110618
  3. INNOHEP [Suspect]
     Indication: PULMONARY EMBOLISM
     Dosage: 14000 UNITS DAILY,SUBCUTANEOUS ; 0.6 MG (1 IN 1 D),SUBCUTANEOUS ; (1 IN 1 D),SUBCUTANEOUS
     Route: 058
     Dates: start: 20110509, end: 20120405
  4. RITUXIMAB [Suspect]
     Indication: NON-HODGKIN^S LYMPHOMA
     Dosage: 800 MG DAY 1 OF EACH 28 CYCLE,INTRAVENOUS
     Route: 042
     Dates: start: 20120202
  5. BENDAMUSTINE HYDROCHLORIDE [Suspect]
     Indication: NON-HODGKIN^S LYMPHOMA
     Dosage: 255 MG DAYS 1 AND 2 OF EACH 28 DAY CYCLE,INTRAVENOUS
     Route: 042
     Dates: start: 20120202
  6. PREDNISOLONE [Suspect]
     Indication: PRODUCT USED FOR UNKNOWN INDICATION
     Dosage: 10 MG (1 IN 1 D),ORAL
     Route: 048
  7. TAMSULOSIN HYDROCHLORIDE [Concomitant]
  8. VALACYCLOVIR [Concomitant]
  9. ESOMEPRAZOLE MAGNESIUM [Concomitant]
  10. ALLOPURINOL [Concomitant]
  11. BISOPROLOL FUMARATE [Concomitant]

REACTIONS (8)
  - LOWER URINARY TRACT SYMPTOMS [None]
  - DYSPEPSIA [None]
  - TACHYCARDIA [None]
  - Spinal compression fracture [None]
  - LYMPHADENOPATHY [None]
  - CALCULUS URINARY [None]
  - INCORRECT DRUG ADMINISTRATION DURATION [None]
  - UNDERDOSE [None]
